FAERS Safety Report 7864504-1 (Version None)
Quarter: 2011Q4

REPORT INFORMATION
  Report Type: 
  Country: None (occurrence: None)
  Receive Date: 20111028
  Receipt Date: 20111024
  Transmission Date: 20120403
  Serious: No
  Sender: FDA-Public Use
  Company Number: US-PFIZER INC-2011260563

PATIENT
  Sex: Male
  Weight: 83.7 kg

DRUGS (32)
  1. KEPPRA [Concomitant]
     Indication: CONVULSION
     Dosage: 500 MG, 2X/DAY
  2. DEXAMETHASONE [Concomitant]
     Dosage: 4 MG, AS DIRECTED
     Route: 048
  3. PAXIL [Concomitant]
     Dosage: 40 MG, EVERY DAY
     Route: 048
  4. RESTORIL [Concomitant]
     Indication: SLEEP DISORDER
     Dosage: 15 MG, AT BEDTIME
     Route: 048
  5. XANAX [Concomitant]
     Indication: DEPRESSION
  6. CABAZITAXEL [Concomitant]
     Dosage: UNK
  7. FAMOTIDINE [Concomitant]
     Dosage: 20 MG, 2X/DAY
     Route: 048
  8. BENADRYL [Concomitant]
     Dosage: UNK
  9. ALPRAZOLAM [Concomitant]
     Indication: INSOMNIA
  10. ZOLPIDEM [Concomitant]
     Dosage: 12.5 MG, AT BEDTIME
  11. LEXAPRO [Concomitant]
     Indication: ANXIETY
     Dosage: 20 MG, EVERY DAY
     Route: 048
  12. LEXAPRO [Concomitant]
     Indication: DEPRESSION
     Dosage: 10 MG, 1X/DAY
  13. ONDANSETRON [Concomitant]
     Indication: VOMITING
  14. XANAX [Concomitant]
     Indication: SLEEP DISORDER
  15. DILANTIN-125 [Suspect]
     Dosage: UNK
  16. ONDANSETRON [Concomitant]
     Indication: NAUSEA
     Dosage: 8 MG, EVERY 12 HOURS
     Route: 048
  17. XANAX [Concomitant]
     Indication: ANXIETY
     Dosage: 1 TABLET EVERY 3 HOURS AS NEEDED FOR ANXIETY OR 2 TABLETS AT BED TIME FOR SLEEP
  18. ALPRAZOLAM [Concomitant]
     Indication: NAUSEA
  19. MEGACE [Concomitant]
     Dosage: 800 MG, EVERY DAY
     Route: 048
  20. PROCHLORPERAZINE [Concomitant]
     Indication: NAUSEA
     Dosage: 10 MG, AT BEDTIME
     Route: 048
  21. ALPRAZOLAM [Concomitant]
     Indication: VOMITING
  22. LEVETIRACETAM [Concomitant]
     Dosage: 500 MG,
     Route: 048
  23. LISINOPRIL [Concomitant]
     Dosage: 20 MG, EVERY DAY
     Route: 048
  24. METFORMIN [Concomitant]
     Dosage: 1000 MG, 2X/DAY
     Route: 048
  25. PROCHLORPERAZINE [Concomitant]
     Indication: VOMITING
  26. SIMVASTATIN [Concomitant]
     Dosage: 20 MG, AT BEDTIME
     Route: 048
  27. SENNA [Concomitant]
     Dosage: UNK
  28. ALPRAZOLAM [Concomitant]
     Indication: ANXIETY
     Dosage: 1 MG, 3X/DAY; AS NEEDED
     Route: 048
  29. ZOLPIDEM [Concomitant]
     Indication: SLEEP DISORDER
     Dosage: 10 MG, AT BEDTIME; AS NEEDED
     Route: 048
  30. CODEINE AND GUAIFENESIN [Concomitant]
     Dosage: 10 ML, EVERY 4 HOURS; AS NEEDED
     Route: 048
  31. MULTI-VITAMINS [Concomitant]
     Dosage: UNK
  32. PEPCID [Concomitant]
     Dosage: 20 MG, 2X/DAY

REACTIONS (1)
  - DRUG HYPERSENSITIVITY [None]
